FAERS Safety Report 5404960-1 (Version None)
Quarter: 2007Q3

REPORT INFORMATION
  Report Type: 
  Country: None (occurrence: None)
  Receive Date: 20070803
  Receipt Date: 20070726
  Transmission Date: 20080115
  Serious: Yes (Hospitalization)
  Sender: FDA-Public Use
  Company Number: AT-AMGEN-UK236267

PATIENT
  Sex: Male
  Weight: 84 kg

DRUGS (13)
  1. ARANESP [Suspect]
     Indication: RENAL FAILURE CHRONIC
     Route: 058
     Dates: start: 20050225
  2. CARVEDILOL [Concomitant]
     Route: 048
     Dates: start: 20061011
  3. PANTOPRAZOLE SODIUM [Concomitant]
     Route: 048
     Dates: start: 20050119
  4. CARVEDILOL [Concomitant]
     Route: 048
     Dates: start: 20061011
  5. SODIUM BICARBONATE [Concomitant]
     Route: 048
     Dates: start: 20060920
  6. ETALPHA [Concomitant]
     Route: 048
     Dates: start: 20070715
  7. PREDNISOLONE [Concomitant]
     Route: 048
     Dates: start: 20061108
  8. SANDIMMUNE [Concomitant]
     Route: 048
     Dates: start: 20070719
  9. CEFAZOLIN [Concomitant]
     Route: 042
     Dates: start: 20070718
  10. THROMBO ASS [Concomitant]
     Route: 048
     Dates: start: 20070723
  11. CYCLOSPORINE [Concomitant]
     Route: 065
     Dates: start: 20070721
  12. SIROLIMUS [Concomitant]
     Route: 065
     Dates: start: 20060118, end: 20070718
  13. TACROLIMUS [Concomitant]
     Route: 065
     Dates: start: 20050608, end: 20060118

REACTIONS (2)
  - ANAEMIA [None]
  - LUNG INFILTRATION [None]
